FAERS Safety Report 4365365-8 (Version None)
Quarter: 2004Q2

REPORT INFORMATION
  Report Type: 
  Country: None (occurrence: None)
  Receive Date: 20040525
  Receipt Date: 20040507
  Transmission Date: 20050107
  Serious: Yes (Hospitalization)
  Sender: FDA-Public Use
  Company Number: RENA-11018

PATIENT
  Age: 59 Year
  Sex: Male

DRUGS (2)
  1. RENAGEL [Suspect]
     Indication: HYPERPHOSPHATAEMIA
  2. RENAGEL [Suspect]
     Indication: HYPERPHOSPHATAEMIA

REACTIONS (5)
  - ARTERIOVENOUS FISTULA SITE COMPLICATION [None]
  - ECONOMIC PROBLEM [None]
  - FLUID OVERLOAD [None]
  - GALLBLADDER DISORDER [None]
  - HYPERTENSION [None]
